FAERS Safety Report 4347073-2 (Version None)
Quarter: 2004Q2

REPORT INFORMATION
  Report Type: 
  Country: None (occurrence: None)
  Receive Date: 20040426
  Receipt Date: 20031112
  Transmission Date: 20050107
  Serious: Yes (Death)
  Sender: FDA-Public Use
  Company Number: FR-GLAXOSMITHKLINE-B0314643A

PATIENT
  Sex: Female

DRUGS (5)
  1. ZYBAN [Suspect]
     Route: 048
  2. LIBRAX [Concomitant]
     Route: 048
  3. LEVOTHYROXINE SODIUM [Concomitant]
     Route: 048
  4. CATAPRES [Concomitant]
  5. AGREAL [Concomitant]
     Route: 048

REACTIONS (4)
  - CONVULSION [None]
  - DRUG LEVEL INCREASED [None]
  - OVERDOSE [None]
  - SUDDEN DEATH [None]
